FAERS Safety Report 24684310 (Version 1)
Quarter: 2024Q4

REPORT INFORMATION
  Report Type: Spontaneous
  Country: AU (occurrence: AU)
  Receive Date: 20241202
  Receipt Date: 20241202
  Transmission Date: 20250115
  Serious: Yes (Hospitalization)
  Sender: COLLEGIUM PHARMACEUTICAL
  Company Number: None

PATIENT
  Age: 81 Year
  Sex: Female

DRUGS (2)
  1. NUCYNTA [Suspect]
     Active Substance: TAPENTADOL HYDROCHLORIDE
     Indication: Back pain
     Dosage: 50 MILLIGRAM, UNKNOWN
     Route: 048
  2. PALEXIA [Suspect]
     Active Substance: TAPENTADOL HYDROCHLORIDE
     Indication: Back pain
     Dosage: 150 MILLIGRAM, 2/DAY
     Route: 048
     Dates: start: 20241015, end: 20241017

REACTIONS (2)
  - Fall [Not Recovered/Not Resolved]
  - Haemoglobin decreased [Not Recovered/Not Resolved]

NARRATIVE: CASE EVENT DATE: 20241015
